FAERS Safety Report 5137064-6 (Version None)
Quarter: 2006Q4

REPORT INFORMATION
  Report Type: 
  Country: None (occurrence: None)
  Receive Date: 20061030
  Receipt Date: 20050701
  Transmission Date: 20070319
  Serious: Yes (Hospitalization)
  Sender: FDA-Public Use
  Company Number: US-AMGEN-US143916

PATIENT
  Sex: Male

DRUGS (8)
  1. PANITUMUMAB [Suspect]
     Indication: COLORECTAL CANCER
     Route: 042
     Dates: start: 20050526
  2. OXALIPLATIN [Suspect]
     Route: 042
  3. FLUOROURACIL [Suspect]
     Route: 042
  4. AVASTIN [Concomitant]
     Route: 042
  5. LEUCOVORIN CALCIUM [Concomitant]
     Route: 042
  6. WELLBUTRIN [Concomitant]
     Route: 065
  7. PAXIL [Concomitant]
     Route: 065
  8. COUMADIN [Concomitant]
     Route: 065

REACTIONS (2)
  - PSEUDOMEMBRANOUS COLITIS [None]
  - STAPHYLOCOCCAL BACTERAEMIA [None]
